FAERS Safety Report 11838144 (Version 1)
Quarter: 2015Q4

REPORT INFORMATION
  Report Type: Spontaneous
  Country: US (occurrence: US)
  Receive Date: 20151215
  Receipt Date: 20151215
  Transmission Date: 20160305
  Serious: No
  Sender: FDA-Public Use
  Company Number: US-GLAXOSMITHKLINE-US2015GSK175953

PATIENT
  Age: 22 Year
  Sex: Female

DRUGS (1)
  1. LAMOTRIGINE TABLET [Suspect]
     Active Substance: LAMOTRIGINE
     Indication: EPILEPSY
     Dosage: UNK, BID

REACTIONS (5)
  - Drug ineffective [Unknown]
  - Inability to afford medication [Unknown]
  - Drug dose omission [Unknown]
  - Emergency care examination [Unknown]
  - Product substitution issue [Unknown]
